FAERS Safety Report 18933604 (Version 1)
Quarter: 2021Q1

REPORT INFORMATION
  Report Type: Spontaneous
  Country: US (occurrence: US)
  Receive Date: 20210224
  Receipt Date: 20210224
  Transmission Date: 20210420
  Serious: No
  Sender: FDA-Public Use
  Company Number: US-BAUSCH-BL-2021-005478

PATIENT
  Age: 56 Year
  Sex: Female
  Weight: 62.2 kg

DRUGS (4)
  1. KERYDIN [Concomitant]
     Active Substance: TAVABOROLE
     Indication: NAIL DISORDER
     Route: 061
     Dates: start: 2020
  2. FLONASE [Concomitant]
     Active Substance: FLUTICASONE PROPIONATE
     Indication: PRODUCT USED FOR UNKNOWN INDICATION
     Dates: start: 2020
  3. ATROVENT [Concomitant]
     Active Substance: IPRATROPIUM BROMIDE
     Indication: PRODUCT USED FOR UNKNOWN INDICATION
     Dates: start: 2020
  4. VITRASE [Suspect]
     Active Substance: HYALURONIDASE, OVINE
     Indication: ADJUVANT THERAPY
     Dosage: STRENGTH: 200 USP UNITS/ML
     Route: 065
     Dates: start: 2018

REACTIONS (1)
  - Skin laxity [Not Recovered/Not Resolved]
